FAERS Safety Report 13615969 (Version 6)
Quarter: 2018Q2

REPORT INFORMATION
  Report Type: Spontaneous
  Country: JP (occurrence: JP)
  Receive Date: 20170606
  Receipt Date: 20180515
  Transmission Date: 20180711
  Serious: Yes (Death, Other)
  Sender: FDA-Public Use
  Company Number: JP-009507513-1705JPN002619J

PATIENT
  Age: 58 Year
  Sex: Female
  Weight: 43 kg

DRUGS (12)
  1. MORPHINE SULFATE HYDRATE [Concomitant]
     Dosage: 30.0 MG, BID
     Route: 048
     Dates: end: 20170607
  2. DENOTAS [Concomitant]
     Active Substance: CALCIUM CARBONATE\CHOLECALCIFEROL\MAGNESIUM CARBONATE
     Dosage: 1.0 DF, BID
     Route: 048
     Dates: end: 20170608
  3. NEXIUM [Concomitant]
     Active Substance: ESOMEPRAZOLE MAGNESIUM
     Dosage: 20.0 MG, QD
     Route: 048
     Dates: end: 20170608
  4. KEYTRUDA [Suspect]
     Active Substance: PEMBROLIZUMAB
     Indication: LUNG ADENOCARCINOMA
     Dosage: 200 MG, Q3W
     Route: 041
     Dates: start: 20170502, end: 20170523
  5. PANTETHINE [Concomitant]
     Active Substance: PANTETHINE
     Dosage: 100.0 MG, TID
     Route: 048
     Dates: end: 20170620
  6. DEXAMETHASONE. [Concomitant]
     Active Substance: DEXAMETHASONE
     Indication: LUNG ADENOCARCINOMA
     Dosage: 1.0 MG, BID
     Route: 048
     Dates: end: 20170614
  7. DENOSUMAB [Concomitant]
     Active Substance: DENOSUMAB
     Indication: LUNG ADENOCARCINOMA
     Dosage: 120 MG, EVERY 4 WEEKS
     Route: 065
  8. SOLACET F [Concomitant]
     Dosage: 500 ML, QD
     Route: 051
     Dates: start: 20170502, end: 20170502
  9. MAGMITT [Concomitant]
     Active Substance: MAGNESIUM OXIDE
     Dosage: 330.0 MG, TID
     Route: 048
     Dates: end: 20170620
  10. AMBROXOL HYDROCHLORIDE [Concomitant]
     Active Substance: AMBROXOL HYDROCHLORIDE
     Indication: LUNG ADENOCARCINOMA
     Dosage: 15.0 MG, TID
     Route: 048
     Dates: end: 20170620
  11. PRIMPERAN [Concomitant]
     Active Substance: METOCLOPRAMIDE HYDROCHLORIDE
     Dosage: 5.0 MG, TID
     Route: 048
     Dates: end: 20170608
  12. ASVERIN (TIPEPIDINE HIBENZATE) [Concomitant]
     Active Substance: TIPEPIDINE HIBENZATE
     Indication: LUNG ADENOCARCINOMA
     Dosage: 20.0 MG, TID
     Route: 048
     Dates: end: 20170620

REACTIONS (7)
  - Decreased appetite [Recovered/Resolved]
  - Malignant neoplasm progression [Fatal]
  - Urine output increased [Not Recovered/Not Resolved]
  - Hypothyroidism [Not Recovered/Not Resolved]
  - Carcinoembryonic antigen increased [Not Recovered/Not Resolved]
  - Carbohydrate antigen 19-9 [Not Recovered/Not Resolved]
  - Muscular weakness [Not Recovered/Not Resolved]

NARRATIVE: CASE EVENT DATE: 20170505
